FAERS Safety Report 23618100 (Version 1)
Quarter: 2024Q1

REPORT INFORMATION
  Report Type: Report from Study
  Country: BE (occurrence: BE)
  Receive Date: 20240311
  Receipt Date: 20240311
  Transmission Date: 20240410
  Serious: Yes (Other)
  Sender: FDA-Public Use
  Company Number: BE-ABBVIE-5659922

PATIENT
  Sex: Female
  Weight: 69 kg

DRUGS (12)
  1. CARBIDOPA\LEVODOPA [Suspect]
     Active Substance: CARBIDOPA\LEVODOPA
     Indication: Parkinson^s disease
     Dosage: MD: 2.5 ML, CD: 2.1 ML/H, ED: 2.5 ML REMAINS AT 16 HOURS
     Route: 050
     Dates: start: 20230130, end: 20230306
  2. CARBIDOPA\LEVODOPA [Suspect]
     Active Substance: CARBIDOPA\LEVODOPA
     Dosage: MD: 2.5 ML, CD: 2.3 ML/H, ED: 2.5 ML REMAINS AT 16 HOURS
     Route: 050
     Dates: start: 20220916, end: 20230130
  3. CARBIDOPA\LEVODOPA [Suspect]
     Active Substance: CARBIDOPA\LEVODOPA
     Dosage: MD: 2.5 ML, CD: 2.3 ML/H, ED: 2.5 ML REMAINS AT 16 HOURS
     Route: 050
     Dates: start: 20230306
  4. PRAMIPEXOLE [Concomitant]
     Active Substance: PRAMIPEXOLE\PRAMIPEXOLE DIHYDROCHLORIDE
     Indication: Product used for unknown indication
     Route: 065
  5. AMANTADINE [Concomitant]
     Active Substance: AMANTADINE
     Indication: Product used for unknown indication
     Dosage: FORM STRENGTH: 100 MILLIGRAM
     Route: 065
  6. CARBIDOPA\ENTACAPONE\LEVODOPA [Concomitant]
     Active Substance: CARBIDOPA\ENTACAPONE\LEVODOPA
     Indication: Product used for unknown indication
     Dosage: 100-25-200
     Route: 065
  7. ROPINIROLE [Concomitant]
     Active Substance: ROPINIROLE
     Indication: Product used for unknown indication
     Dosage: FORM STRENGTH: 8 MILLIGRAM
     Route: 065
  8. RIVOTRIL [Concomitant]
     Active Substance: CLONAZEPAM
     Indication: Product used for unknown indication
     Dosage: 2 MG, 1/4 TABLET?FREQUENCY TEXT: AT 22:00 HRS
     Route: 065
  9. TAMOXIFEN CITRATE [Concomitant]
     Active Substance: TAMOXIFEN CITRATE
     Indication: Product used for unknown indication
     Dosage: FORM STRENGTH: 10 MILLIGRAM
     Route: 065
  10. INDAPAMIDE [Concomitant]
     Active Substance: INDAPAMIDE
     Indication: Product used for unknown indication
     Dosage: FORM STRENGTH: 2.5 MILLIGRAM
     Route: 065
  11. MELATONIN [Concomitant]
     Active Substance: MELATONIN
     Indication: Product used for unknown indication
     Dosage: FORM STRENGTH: 2 MILLIGRAM
     Route: 065
  12. XADAGO [Concomitant]
     Active Substance: SAFINAMIDE MESYLATE
     Indication: Product used for unknown indication
     Dosage: FORM STRENGTH: 100 MILLIGRAM
     Route: 065

REACTIONS (4)
  - Embedded device [Unknown]
  - Device dislocation [Recovered/Resolved]
  - Device issue [Not Recovered/Not Resolved]
  - Stoma site pain [Recovered/Resolved]

NARRATIVE: CASE EVENT DATE: 20240101
